FAERS Safety Report 8106638-2 (Version None)
Quarter: 2012Q1

REPORT INFORMATION
  Report Type: 
  Country: None (occurrence: None)
  Receive Date: 20120202
  Receipt Date: 20120131
  Transmission Date: 20120608
  Serious: Yes (Hospitalization, Other)
  Sender: FDA-Public Use
  Company Number: US-B.I. PHARMACEUTICALS,INC./RIDGEFIELD-2011-BP-28704BP

PATIENT
  Sex: Male

DRUGS (4)
  1. DILTIAZEM HCL [Concomitant]
     Indication: CARDIOVASCULAR DISORDER
     Dosage: 180 MG
     Route: 048
  2. PRADAXA [Suspect]
     Indication: ATRIAL FIBRILLATION
     Dosage: 300 MG
     Route: 048
     Dates: start: 20111001, end: 20111101
  3. PRADAXA [Suspect]
     Dosage: 300 MG
     Route: 048
     Dates: start: 20111202
  4. LANOXIN [Concomitant]
     Indication: CARDIOVASCULAR DISORDER
     Dosage: 0.125 MG
     Route: 048

REACTIONS (2)
  - HAEMATURIA [None]
  - BLADDER MASS [None]
